FAERS Safety Report 15397748 (Version 1)
Quarter: 2018Q3

REPORT INFORMATION
  Report Type: Spontaneous
  Country: US (occurrence: US)
  Receive Date: 20180913
  Receipt Date: 20180913
  Transmission Date: 20181010
  Serious: No
  Sender: FDA-Public Use
  Company Number: None

PATIENT
  Age: 58 Year
  Sex: Female

DRUGS (1)
  1. ESTRADIOL. [Suspect]
     Active Substance: ESTRADIOL
     Route: 061
     Dates: start: 20180814, end: 20180913

REACTIONS (2)
  - Application site irritation [None]
  - Application site pruritus [None]

NARRATIVE: CASE EVENT DATE: 20180913
